FAERS Safety Report 17576075 (Version 1)
Quarter: 2020Q1

REPORT INFORMATION
  Report Type: Report from Study
  Country: US (occurrence: US)
  Receive Date: 20200324
  Receipt Date: 20200324
  Transmission Date: 20200409
  Serious: Yes (Death)
  Sender: FDA-Public Use
  Company Number: US-JNJFOC-NSADSS2002000208

PATIENT
  Age: 83 Year
  Sex: Male
  Weight: 68 kg

DRUGS (6)
  1. ZYRTEC [Concomitant]
     Active Substance: CETIRIZINE HYDROCHLORIDE
     Indication: RHINITIS ALLERGIC
     Route: 048
  2. LACTOSE [Concomitant]
     Active Substance: LACTOSE
     Indication: CONSTIPATION
     Route: 048
  3. CISAPRIDE [Suspect]
     Active Substance: CISAPRIDE
     Indication: OBSTRUCTION
     Route: 048
     Dates: start: 20001016, end: 20011225
  4. DUCLOLAX [Concomitant]
     Indication: CONSTIPATION
     Route: 054
  5. PREVACID [Concomitant]
     Active Substance: LANSOPRAZOLE
     Indication: OESOPHAGITIS
     Route: 048
  6. CYCLOCORT [Concomitant]
     Active Substance: AMCINONIDE
     Indication: ECZEMA
     Route: 003

REACTIONS (1)
  - Pneumonia [Fatal]

NARRATIVE: CASE EVENT DATE: 20011225
